FAERS Safety Report 5282362-9 (Version None)
Quarter: 2007Q1

REPORT INFORMATION
  Report Type: 
  Country: None (occurrence: None)
  Receive Date: 20070326
  Receipt Date: 20070321
  Transmission Date: 20070707
  Serious: Yes (Hospitalization)
  Sender: FDA-Public Use
  Company Number: E2020-01089-SPO-FR

PATIENT
  Age: 63 Year
  Sex: Male

DRUGS (2)
  1. ARICEPT [Suspect]
     Indication: SUICIDE ATTEMPT
     Dosage: UNKNOWN, UNKNOWN, ORAL
     Route: 048
     Dates: start: 20070301, end: 20070301
  2. LEXOMIL (BROMAZEPAM) [Suspect]
     Indication: DEPRESSION
     Dosage: UNKNOWN, ORAL
     Route: 048
     Dates: end: 20070301

REACTIONS (4)
  - COMA [None]
  - SELF-MEDICATION [None]
  - SINUS BRADYCARDIA [None]
  - SUICIDE ATTEMPT [None]
